FAERS Safety Report 24179163 (Version 2)
Quarter: 2024Q3

REPORT INFORMATION
  Report Type: Spontaneous
  Country: ES (occurrence: ES)
  Receive Date: 20240806
  Receipt Date: 20240812
  Transmission Date: 20241016
  Serious: Yes (Life-Threatening, Hospitalization, Other)
  Sender: PFIZER
  Company Number: ES-PFIZER INC-PV202400100975

PATIENT
  Age: 65 Year
  Sex: Male

DRUGS (6)
  1. VORICONAZOLE [Suspect]
     Active Substance: VORICONAZOLE
     Indication: Aspergillus infection
     Dosage: 4 MG/KG, EVERY 12 HOURS ON THE FIRST DAY
     Route: 042
  2. VORICONAZOLE [Suspect]
     Active Substance: VORICONAZOLE
     Indication: Lower respiratory tract infection bacterial
     Dosage: 6 MG/KG, EVERY 12 HOURS, MAINTENANCE DOSES
     Route: 042
  3. VORICONAZOLE [Suspect]
     Active Substance: VORICONAZOLE
     Dosage: UNK, CONTINUED TREATMENT FOR 2 WEEKS
  4. VORICONAZOLE [Suspect]
     Active Substance: VORICONAZOLE
     Dosage: 3 MG/KG, DAILY
     Route: 042
  5. CEFTAZIDIME [Concomitant]
     Active Substance: CEFTAZIDIME
     Indication: Lower respiratory tract infection bacterial
     Dosage: UNK
  6. AMPHOTERICIN B [Concomitant]
     Active Substance: AMPHOTERICIN B
     Dosage: NEBULIZED: 25 MG IN A DAILY NEBULIZATION
     Route: 055

REACTIONS (2)
  - Anaemia [Unknown]
  - Halo vision [Unknown]
